FAERS Safety Report 5898560-7 (Version None)
Quarter: 2008Q3

REPORT INFORMATION
  Report Type: 
  Country: None (occurrence: None)
  Receive Date: 20080925
  Receipt Date: 20080117
  Transmission Date: 20090109
  Serious: No
  Sender: FDA-Public Use
  Company Number: A0705503A

PATIENT
  Sex: Male

DRUGS (1)
  1. WELLBUTRIN XL [Suspect]
     Indication: DRUG USE FOR UNKNOWN INDICATION
     Dosage: 150MG UNKNOWN
     Route: 048

REACTIONS (5)
  - ADVERSE EVENT [None]
  - APATHY [None]
  - DEPRESSION [None]
  - ILL-DEFINED DISORDER [None]
  - PERFORMANCE STATUS DECREASED [None]
